FAERS Safety Report 8723006 (Version 3)
Quarter: 2012Q4

REPORT INFORMATION
  Report Type: 
  Country: JP (occurrence: JP)
  Receive Date: 20120814
  Receipt Date: 20120918
  Transmission Date: 20130627
  Serious: Yes (Hospitalization)
  Sender: FDA-Public Use
  Company Number: JP-JNJFOC-20120804385

PATIENT
  Age: 78 Year
  Sex: Male
  Weight: 53 kg

DRUGS (14)
  1. REMICADE [Suspect]
     Indication: RHEUMATOID ARTHRITIS
     Route: 042
     Dates: start: 20120706
  2. REMICADE [Suspect]
     Indication: RHEUMATOID ARTHRITIS
     Route: 042
     Dates: start: 20120706
  3. REMICADE [Suspect]
     Indication: RHEUMATOID ARTHRITIS
     Route: 042
     Dates: start: 20110805
  4. REMICADE [Suspect]
     Indication: RHEUMATOID ARTHRITIS
     Dosage: Total number of infusions: 14
     Route: 042
     Dates: start: 20100820
  5. REMICADE [Suspect]
     Indication: RHEUMATOID ARTHRITIS
     Dosage: Total number of infusions: 14
     Route: 042
     Dates: start: 20100830
  6. PYRINAZIN [Concomitant]
     Indication: PREMEDICATION
     Route: 050
     Dates: start: 20120706, end: 20120706
  7. ALL OTHER THERAPEUTICS [Concomitant]
     Indication: PREMEDICATION
     Dosage: Diphenhydramine hydrochloride, calcium bromide
     Route: 050
     Dates: start: 20120706, end: 20120706
  8. METHOTREXATE [Concomitant]
     Indication: RHEUMATOID ARTHRITIS
     Dosage: 4mg/w
     Route: 048
     Dates: start: 201003
  9. METHOTREXATE [Concomitant]
     Indication: RHEUMATOID ARTHRITIS
     Dosage: 4mg/w
     Route: 048
  10. PREDONINE [Concomitant]
     Indication: RHEUMATOID ARTHRITIS
     Route: 048
     Dates: start: 20090714
  11. PREDONINE [Concomitant]
     Indication: RHEUMATOID ARTHRITIS
     Route: 048
  12. CELECOX [Concomitant]
     Indication: RHEUMATOID ARTHRITIS
     Dosage: Diphenhydramine hydrochloride, calcium bromide
     Route: 048
     Dates: start: 20090710
  13. FOLIAMIN [Concomitant]
     Indication: RHEUMATOID ARTHRITIS
     Dosage: 4mg/w
     Route: 048
     Dates: start: 201003
  14. YOKUKAN-SAN [Concomitant]
     Indication: DEMENTIA
     Dosage: 4mg/w
     Route: 048
     Dates: start: 201204

REACTIONS (7)
  - Pyrexia [Recovered/Resolved]
  - Chills [Unknown]
  - Infusion related reaction [Recovered/Resolved]
  - Oxygen saturation decreased [Unknown]
  - Blood glucose increased [Recovered/Resolved]
  - Blood pressure diastolic decreased [Unknown]
  - Red blood cell count decreased [Unknown]
